FAERS Safety Report 11201501 (Version 1)
Quarter: 2015Q2

REPORT INFORMATION
  Report Type: Spontaneous
  Country: US (occurrence: None)
  Receive Date: 20150618
  Receipt Date: 20150618
  Transmission Date: 20150821
  Serious: Yes (Other)
  Sender: FDA-Public Use
  Company Number: None

PATIENT
  Age: 53 Year
  Sex: Female

DRUGS (2)
  1. RIBAVARIN [Suspect]
     Active Substance: RIBAVIRIN
     Indication: HEPATITIS C
     Dosage: 3 CAPSULES BID PO
     Route: 048
     Dates: start: 20150527
  2. SOVALDI [Suspect]
     Active Substance: SOFOSBUVIR
     Indication: HEPATITIS C
     Route: 048
     Dates: start: 20150527

REACTIONS (6)
  - Nausea [None]
  - Rash [None]
  - Urticaria [None]
  - Vomiting [None]
  - Drug dose omission [None]
  - Erythema [None]

NARRATIVE: CASE EVENT DATE: 201506
